FAERS Safety Report 10881117 (Version 1)
Quarter: 2015Q1

REPORT INFORMATION
  Report Type: Spontaneous
  Country: US (occurrence: US)
  Receive Date: 20150303
  Receipt Date: 20150303
  Transmission Date: 20150721
  Serious: Yes (Hospitalization)
  Sender: FDA-Public Use
  Company Number: US-PFIZER INC-2015073866

PATIENT
  Age: 92 Year
  Sex: Female
  Weight: 66 kg

DRUGS (6)
  1. REVATIO [Suspect]
     Active Substance: SILDENAFIL CITRATE
     Indication: PULMONARY ARTERIAL HYPERTENSION
     Dosage: 20 MG, 3X/DAY
     Dates: start: 2012
  2. DIGOXIN. [Concomitant]
     Active Substance: DIGOXIN
  3. ASPIRIN. [Concomitant]
     Active Substance: ASPIRIN
  4. TRACLEER [Concomitant]
     Active Substance: BOSENTAN\BOSENTAN MONOHYDRATE
  5. TORSEMIDE. [Concomitant]
     Active Substance: TORSEMIDE
  6. HYDRALAZINE [Concomitant]
     Active Substance: HYDRALAZINE HYDROCHLORIDE

REACTIONS (1)
  - Dyspnoea [Recovering/Resolving]
